FAERS Safety Report 5107292-4 (Version None)
Quarter: 2006Q3

REPORT INFORMATION
  Report Type: 
  Country: None (occurrence: None)
  Receive Date: 20060914
  Receipt Date: 20060906
  Transmission Date: 20061208
  Serious: Yes (Other)
  Sender: FDA-Public Use
  Company Number: 228809

PATIENT
  Sex: Female

DRUGS (2)
  1. LUCENTIS [Suspect]
     Indication: MACULAR DEGENERATION
     Dosage: INTRAVITREAL
     Dates: start: 20060725
  2. MULTIPLE UNSPECIFIED MEDICATIONS (GENERIC COMPONENT (S) [Concomitant]

REACTIONS (1)
  - HAEMANGIOMA [None]
